FAERS Safety Report 5389926-2 (Version None)
Quarter: 2007Q3

REPORT INFORMATION
  Report Type: 
  Country: None (occurrence: None)
  Receive Date: 20070718
  Receipt Date: 20070710
  Transmission Date: 20080115
  Serious: Yes (Other)
  Sender: FDA-Public Use
  Company Number: JP-JNJFOC-20070703156

PATIENT
  Sex: Female

DRUGS (1)
  1. RISPERDAL [Suspect]
     Indication: INSOMNIA
     Route: 048

REACTIONS (6)
  - ARRHYTHMIA [None]
  - HYPERLIPIDAEMIA [None]
  - MYALGIA [None]
  - NIGHTMARE [None]
  - OEDEMA [None]
  - WEIGHT INCREASED [None]
